FAERS Safety Report 6920287-0 (Version None)
Quarter: 2010Q3

REPORT INFORMATION
  Report Type: 
  Country: None (occurrence: None)
  Receive Date: 20100809
  Receipt Date: 20100730
  Transmission Date: 20110219
  Serious: Yes (Hospitalization)
  Sender: FDA-Public Use
  Company Number: CLOF-10404

PATIENT
  Age: 9 Year
  Sex: Female
  Weight: 29.2 kg

DRUGS (21)
  1. CLOFARABINE (CLOFARABINE) SOLUTION FOR INFUSION [Suspect]
     Indication: ACUTE LYMPHOCYTIC LEUKAEMIA
     Dosage: 32 MG/M2, QD, INTRAVENOUS; 20 MG/M2, QD, INTRAVENOUS
     Route: 042
     Dates: start: 20061129, end: 20061202
  2. CLOFARABINE (CLOFARABINE) SOLUTION FOR INFUSION [Suspect]
     Indication: ACUTE LYMPHOCYTIC LEUKAEMIA
     Dosage: 32 MG/M2, QD, INTRAVENOUS; 20 MG/M2, QD, INTRAVENOUS
     Route: 042
     Dates: start: 20061226
  3. ETOPOSIDE [Suspect]
     Indication: ACUTE LYMPHOCYTIC LEUKAEMIA
     Dosage: 106 MG, QD, INTRAVENOUS; 106 MG, QD, INTRAVENOUS
     Route: 042
     Dates: start: 20061129, end: 20061202
  4. ETOPOSIDE [Suspect]
     Indication: ACUTE LYMPHOCYTIC LEUKAEMIA
     Dosage: 106 MG, QD, INTRAVENOUS; 106 MG, QD, INTRAVENOUS
     Route: 042
     Dates: start: 20061226
  5. CYCLOPHOSPHAMIDE [Suspect]
     Indication: ACUTE LYMPHOCYTIC LEUKAEMIA
     Dosage: 470 MG, QD, INTRAVENOUS; 470 MG, QD, INTRAVENOUS
     Route: 042
     Dates: start: 20061129, end: 20061202
  6. CYCLOPHOSPHAMIDE [Suspect]
     Indication: ACUTE LYMPHOCYTIC LEUKAEMIA
     Dosage: 470 MG, QD, INTRAVENOUS; 470 MG, QD, INTRAVENOUS
     Route: 042
     Dates: start: 20061226
  7. ACETAMINOPHEN [Concomitant]
  8. ALLOPURINOL [Concomitant]
  9. ALUMINUM HYDROXIDE [Concomitant]
  10. AMIKACIN [Concomitant]
  11. CEFEPIME [Concomitant]
  12. DEXAMETHASONE [Concomitant]
  13. DIPHENHYDRAMINE HCL [Concomitant]
  14. LORAZEPAM [Concomitant]
  15. ONDANSETRAN - ZOFRAN [Concomitant]
  16. RANITIDINE [Concomitant]
  17. CHLORHEXIDINE (CHLORHEXIDINE) [Concomitant]
  18. NYSTATIN [Concomitant]
  19. SODIUM BICARBONATE IN PLASTIC CONTAINER [Concomitant]
  20. BACTRIM [Concomitant]
  21. VANCOMYCIN [Concomitant]

REACTIONS (3)
  - FEBRILE NEUTROPENIA [None]
  - PANCREATITIS [None]
  - SPLENOMEGALY [None]
